FAERS Safety Report 9241795 (Version 2)
Quarter: 2016Q2

REPORT INFORMATION
  Report Type: Report from Study
  Country: MX (occurrence: MX)
  Receive Date: 20130419
  Receipt Date: 20160530
  Transmission Date: 20160815
  Serious: Yes (Disabling, Other)
  Sender: FDA-Public Use
  Company Number: PHHY2013MX036982

PATIENT
  Sex: Female

DRUGS (3)
  1. CO-DIOVAN [Suspect]
     Active Substance: HYDROCHLOROTHIAZIDE\VALSARTAN
     Indication: HYPERTENSION
     Dosage: 1 DF, (160 MG OF VALSARTAN AND 12.5 MG OF HYDROCHLOROTHIAZIDE)
     Route: 048
  2. CO-DIOVAN [Suspect]
     Active Substance: HYDROCHLOROTHIAZIDE\VALSARTAN
     Dosage: 2 DF, QD (2 TABLETS AT MORNING)
     Route: 048
  3. METFORMIN [Concomitant]
     Active Substance: METFORMIN HYDROCHLORIDE
     Indication: DIABETES MELLITUS
     Dosage: 2 DF, QD (1 AT THE MORNING AND OTHER WITH THE FOOD), 5 OR 6 YEARS AGO
     Route: 065

REACTIONS (6)
  - Muscular weakness [Unknown]
  - Chondropathy [Unknown]
  - Abasia [Unknown]
  - Inflammation [Unknown]
  - Cartilage injury [Recovering/Resolving]
  - Pain [Unknown]
